FAERS Safety Report 9362933 (Version 2)
Quarter: 2013Q3

REPORT INFORMATION
  Report Type: Spontaneous
  Country: DE (occurrence: DE)
  Receive Date: 20130624
  Receipt Date: 20130715
  Transmission Date: 20140515
  Serious: Yes (Other)
  Sender: FDA-Public Use
  Company Number: DE-ROCHE-1239954

PATIENT
  Age: 84 Year
  Sex: Female
  Weight: 67 kg

DRUGS (4)
  1. MABTHERA [Suspect]
     Indication: MICROSCOPIC POLYANGIITIS
     Route: 042
     Dates: start: 20130611, end: 20130612
  2. PREDNISONE [Concomitant]
     Dosage: QD
     Route: 048
     Dates: end: 20130610
  3. COTRIMOXAZOLE [Concomitant]
     Dosage: QD
     Route: 048
     Dates: start: 20130610
  4. CHOLECALCIFEROL [Concomitant]
     Dosage: QD
     Route: 048
     Dates: start: 20130610

REACTIONS (3)
  - Lung infiltration [Recovered/Resolved]
  - Pneumonia [Recovered/Resolved]
  - Pneumonitis [Recovered/Resolved]
